FAERS Safety Report 8968392 (Version 1)
Quarter: 2012Q4

REPORT INFORMATION
  Report Type: 
  Country: US (occurrence: US)
  Receive Date: 20121218
  Receipt Date: 20121218
  Transmission Date: 20130627
  Serious: No
  Sender: FDA-Public Use
  Company Number: US-BRISTOL-MYERS SQUIBB COMPANY-16774564

PATIENT
  Age: 62 Year
  Sex: Male

DRUGS (4)
  1. ABILIFY [Suspect]
     Dates: start: 201111
  2. KLONOPIN [Concomitant]
  3. ZOCOR [Concomitant]
  4. VESICARE [Concomitant]

REACTIONS (1)
  - Vision blurred [Recovering/Resolving]
